FAERS Safety Report 20768475 (Version 9)
Quarter: 2023Q1

REPORT INFORMATION
  Report Type: Other
  Country: JP (occurrence: JP)
  Receive Date: 20220429
  Receipt Date: 20230323
  Transmission Date: 20230418
  Serious: Yes (Death, Hospitalization, Other)
  Sender: FDA-Public Use
  Company Number: JP-ASTELLAS-2022JP006180

PATIENT
  Age: 75 Year
  Sex: Male
  Weight: 58 kg

DRUGS (7)
  1. PADCEV [Suspect]
     Active Substance: ENFORTUMAB VEDOTIN-EJFV
     Indication: Transitional cell carcinoma
     Dosage: 1.0 MG/KG, ONCE WEEKLY, ADMINISTRATION FOR 3 CONSECUTIVE WEEKS AND INTERRUPTION FOR WEEK 4
     Route: 041
     Dates: start: 20220405, end: 20220405
  2. PADCEV [Suspect]
     Active Substance: ENFORTUMAB VEDOTIN-EJFV
     Indication: Ureteric cancer
     Dosage: 1.0 MG/KG, ONCE WEEKLY, ADMINISTRATION FOR 3 CONSECUTIVE WEEKS AND INTERRUPTION FOR WEEK 4
     Route: 041
     Dates: start: 20220419, end: 20220517
  3. PADCEV [Suspect]
     Active Substance: ENFORTUMAB VEDOTIN-EJFV
     Dosage: 0.75 MG/KG, ONCE WEEKLY
     Route: 041
     Dates: start: 20220607, end: 20220621
  4. KEYTRUDA [Concomitant]
     Active Substance: PEMBROLIZUMAB
     Indication: Product used for unknown indication
     Dosage: UNK UNK, UNKNOWN FREQ.
     Route: 065
     Dates: start: 20200911
  5. XARELTO [Concomitant]
     Active Substance: RIVAROXABAN
     Indication: Product used for unknown indication
     Dosage: 10 MG (1T), ONCE DAILY
     Route: 048
     Dates: start: 201907, end: 20220826
  6. ASPIRIN [Concomitant]
     Active Substance: ASPIRIN
     Indication: Product used for unknown indication
     Dosage: 100 MG (1T), ONCE DAILY
     Route: 048
     Dates: start: 201907, end: 20220826
  7. LANSOPRAZOLE [Concomitant]
     Active Substance: LANSOPRAZOLE
     Indication: Product used for unknown indication
     Dosage: 15 MG (1T), ONCE DAILY
     Route: 048
     Dates: start: 201907, end: 20220826

REACTIONS (5)
  - Acute coronary syndrome [Fatal]
  - Duodenitis [Unknown]
  - Pancytopenia [Not Recovered/Not Resolved]
  - Myelosuppression [Recovered/Resolved]
  - Anaemia [Recovering/Resolving]

NARRATIVE: CASE EVENT DATE: 20220412
